FAERS Safety Report 9819325 (Version 1)
Quarter: 2014Q1

REPORT INFORMATION
  Report Type: Spontaneous
  Country: US (occurrence: US)
  Receive Date: 20140115
  Receipt Date: 20140115
  Transmission Date: 20141002
  Serious: Yes (Hospitalization, Other)
  Sender: FDA-Public Use
  Company Number: US-TEVA-456172USA

PATIENT
  Age: 69 Year
  Sex: Female

DRUGS (16)
  1. CIMETIDINE [Suspect]
     Dosage: 300MG DAILY
     Route: 065
  2. FLUOXETINE [Suspect]
     Dosage: 20MG DAILY
     Route: 065
  3. RANEXA [Suspect]
     Indication: ANGINA PECTORIS
     Dosage: 500MG DAILY
     Route: 065
  4. BUMETANIDE [Suspect]
     Dosage: 1MG DAILY
     Route: 065
  5. ATORVASTATIN [Concomitant]
     Dosage: 80MG QHS
     Route: 065
  6. POTASSIUM CHLORIDE [Concomitant]
     Dosage: 20MEQ DAILY
     Route: 065
  7. LOSARTAN [Concomitant]
     Dosage: 100MG DAILY
     Route: 065
  8. AMLODIPINE [Concomitant]
     Dosage: 5MG DAILY
     Route: 065
  9. ALPRAZOLAM [Concomitant]
     Dosage: 0.25MG TID
     Route: 065
  10. ATENOLOL [Concomitant]
     Dosage: 100MG DAILY
     Route: 065
  11. ISOSORBIDE [Concomitant]
     Dosage: 60MG DAILY
     Route: 065
  12. CLOPIDOGREL [Concomitant]
     Dosage: 75MG DAILY
     Route: 065
  13. SALBUTAMOL, IPRATROPIUM BROMIDE [Concomitant]
     Dosage: PRN
     Route: 055
  14. MELOXICAM [Concomitant]
     Dosage: 15MG DAILY
     Route: 065
  15. PANTOPRAZOLE [Concomitant]
     Dosage: 40MG DAILY
     Route: 065
  16. NITROGLYCERIN [Concomitant]
     Dosage: 0.4MG PRN
     Route: 065

REACTIONS (5)
  - Torsade de pointes [Recovering/Resolving]
  - Cardiac arrest [Recovering/Resolving]
  - Hypomagnesaemia [Recovering/Resolving]
  - Hypokalaemia [Recovering/Resolving]
  - Potentiating drug interaction [Unknown]
